FAERS Safety Report 14222570 (Version 1)
Quarter: 2017Q4

REPORT INFORMATION
  Report Type: Spontaneous
  Country: US (occurrence: US)
  Receive Date: 20171124
  Receipt Date: 20171124
  Transmission Date: 20180321
  Serious: Yes (Other)
  Sender: FDA-Public Use
  Company Number: US-JNJFOC-20171114870

PATIENT
  Age: 71 Year
  Sex: Female

DRUGS (2)
  1. LEVAQUIN [Suspect]
     Active Substance: LEVOFLOXACIN
     Indication: COUGH
     Route: 048
  2. LEVAQUIN [Suspect]
     Active Substance: LEVOFLOXACIN
     Indication: SPUTUM DISCOLOURED
     Route: 048

REACTIONS (3)
  - Angioedema [Unknown]
  - Muscle tightness [Unknown]
  - Swelling [Unknown]

NARRATIVE: CASE EVENT DATE: 20111201
